FAERS Safety Report 18657343 (Version 1)
Quarter: 2020Q4

REPORT INFORMATION
  Report Type: Spontaneous
  Country: FR (occurrence: FR)
  Receive Date: 20201223
  Receipt Date: 20201223
  Transmission Date: 20210114
  Serious: Yes (Hospitalization)
  Sender: FDA-Public Use
  Company Number: FR-MYLANLABS-2020M1102530

PATIENT
  Age: 90 Year
  Sex: Female
  Weight: 65 kg

DRUGS (1)
  1. VANCOMYCIN MYLAN [Suspect]
     Active Substance: VANCOMYCIN
     Indication: CLOSTRIDIAL INFECTION
     Dosage: 4 DOSAGE FORM, QD
     Route: 048
     Dates: start: 20201028, end: 20201105

REACTIONS (2)
  - Acute generalised exanthematous pustulosis [Unknown]
  - Rash pustular [Unknown]

NARRATIVE: CASE EVENT DATE: 20201105
